FAERS Safety Report 4719398-X (Version None)
Quarter: 2005Q3

REPORT INFORMATION
  Report Type: 
  Country: None (occurrence: None)
  Receive Date: 20050718
  Receipt Date: 20050317
  Transmission Date: 20060218
  Serious: No
  Sender: FDA-Public Use
  Company Number: 2005000553

PATIENT
  Age: 71 Year
  Sex: Male

DRUGS (11)
  1. TARCEVA [Suspect]
     Indication: NON-SMALL CELL LUNG CANCER
     Dosage: 150 MG (QD), ORAL
     Route: 048
     Dates: start: 20050309
  2. SINGULAIR [Concomitant]
  3. ALBUTEROL [Concomitant]
  4. ACETYLSALICYLIC ACID SRT [Concomitant]
  5. POTASSIUM [Concomitant]
  6. COMPAZINE [Concomitant]
  7. ATIVAN [Concomitant]
  8. PREDNISONE [Concomitant]
  9. DARVOCET [Concomitant]
  10. ALIMTA [Concomitant]
  11. ANTIBIOTICS [Concomitant]

REACTIONS (2)
  - LYMPHADENOPATHY [None]
  - RASH [None]
